FAERS Safety Report 4554510-7 (Version None)
Quarter: 2005Q1

REPORT INFORMATION
  Report Type: 
  Country: None (occurrence: None)
  Receive Date: 20050118
  Receipt Date: 20050107
  Transmission Date: 20050727
  Serious: Yes (Hospitalization)
  Sender: FDA-Public Use
  Company Number: FR-JNJFOC-20040906841

PATIENT
  Sex: Male
  Weight: 70 kg

DRUGS (2)
  1. RISPERDAL CONSTA [Suspect]
     Route: 030
  2. RISPERDAL CONSTA [Suspect]
     Indication: SCHIZOPHRENIA
     Route: 030

REACTIONS (3)
  - ANAL FISSURE [None]
  - ANAL HAEMORRHAGE [None]
  - CONSTIPATION [None]
